FAERS Safety Report 9658010 (Version 2)
Quarter: 2013Q4

REPORT INFORMATION
  Report Type: Spontaneous
  Country: LB (occurrence: LB)
  Receive Date: 20131030
  Receipt Date: 20131129
  Transmission Date: 20140711
  Serious: Yes (Life-Threatening, Hospitalization, Other)
  Sender: FDA-Public Use
  Company Number: LB-TAKEDA-2013TUS001826

PATIENT
  Sex: 0

DRUGS (4)
  1. ADENURIC [Suspect]
     Indication: GOUT
     Dosage: 80 MG, QD
     Route: 048
     Dates: start: 20131009, end: 20131018
  2. EXFORGE HCT [Concomitant]
     Route: 065
  3. COLCHICINE [Concomitant]
     Route: 065
  4. AIRTAL [Concomitant]
     Route: 065

REACTIONS (2)
  - Renal failure acute [Recovered/Resolved]
  - Rhabdomyolysis [Recovered/Resolved]
